FAERS Safety Report 6245814-0 (Version None)
Quarter: 2009Q2

REPORT INFORMATION
  Report Type: 
  Country: None (occurrence: None)
  Receive Date: 20090624
  Receipt Date: 20090611
  Transmission Date: 20091009
  Serious: Yes (Other)
  Sender: FDA-Public Use
  Company Number: 231252K08USA

PATIENT
  Age: 21 Year
  Sex: Female

DRUGS (7)
  1. REBIF [Suspect]
     Indication: MULTIPLE SCLEROSIS
     Route: 058
     Dates: start: 20041108, end: 20050628
  2. REBIF [Suspect]
     Indication: MULTIPLE SCLEROSIS
     Route: 058
     Dates: start: 20060501, end: 20080315
  3. ABILIFY [Suspect]
     Indication: BIPOLAR DISORDER
     Dates: end: 20080301
  4. ECSTASY (ALL OTHER THERAPEUTIC PRODUCTS) [Suspect]
     Dates: start: 20080101, end: 20080101
  5. ALCOHOL(ETHANOL) [Suspect]
     Dosage: DAYS
     Dates: end: 20080301
  6. PERCOCET [Suspect]
     Dates: start: 20080101, end: 20080101
  7. TYLENOL [Concomitant]

REACTIONS (16)
  - ALCOHOL USE [None]
  - AMNESIA [None]
  - ANTEPARTUM HAEMORRHAGE [None]
  - BALANCE DISORDER [None]
  - CHLAMYDIAL INFECTION [None]
  - DEPRESSION [None]
  - DRUG EXPOSURE DURING PREGNANCY [None]
  - EMOTIONAL DISORDER [None]
  - FALL [None]
  - HYPOAESTHESIA [None]
  - LOSS OF CONSCIOUSNESS [None]
  - PAIN [None]
  - PREGNANCY [None]
  - SPINAL CORD DISORDER [None]
  - STILLBIRTH [None]
  - UMBILICAL CORD AROUND NECK [None]
